FAERS Safety Report 8862082 (Version 1)
Quarter: 2012Q4

REPORT INFORMATION
  Report Type: 
  Country: BR (occurrence: BR)
  Receive Date: 20121026
  Receipt Date: 20121026
  Transmission Date: 20130627
  Serious: Yes (Other)
  Sender: FDA-Public Use
  Company Number: BR-PFIZER INC-2012265395

PATIENT
  Age: 33 Year
  Sex: Male
  Weight: 95 kg

DRUGS (3)
  1. SUTENT [Suspect]
     Indication: NEUROENDOCRINE TUMOUR
     Dosage: 37.5 mg (one capsule of 12.5mg and one capsule of 25mg), 1x/day
     Route: 048
     Dates: start: 201209
  2. LANSOPRAZOLE [Concomitant]
     Indication: GASTROOESOPHAGEAL REFLUX DISEASE
     Dosage: 30 mg 1x/day (1 unspecified if capsule or tablet)
     Dates: start: 2005
  3. PRADAXA [Concomitant]
     Indication: ANTICOAGULANT THERAPY

REACTIONS (4)
  - Wound [Not Recovered/Not Resolved]
  - Aphthous stomatitis [Not Recovered/Not Resolved]
  - Dry skin [Not Recovered/Not Resolved]
  - Tongue disorder [Not Recovered/Not Resolved]
